FAERS Safety Report 12508755 (Version 2)
Quarter: 2016Q3

REPORT INFORMATION
  Report Type: Spontaneous
  Country: US (occurrence: US)
  Receive Date: 20160629
  Receipt Date: 20160701
  Transmission Date: 20161109
  Serious: Yes (Other)
  Sender: FDA-Public Use
  Company Number: US-HORIZON-RAV-0117-2016

PATIENT
  Age: 30 Year
  Sex: Male

DRUGS (4)
  1. MULTIVITAMIN WITH IRON [Concomitant]
     Active Substance: IRON\VITAMINS
     Dosage: DAILY
  2. CYCLINEX [Concomitant]
  3. RAVICTI [Suspect]
     Active Substance: GLYCEROL PHENYLBUTYRATE
     Indication: ORNITHINE TRANSCARBAMOYLASE DEFICIENCY
     Dosage: 5.8 ML TID
  4. PROPHREE [Concomitant]

REACTIONS (6)
  - Serum ferritin decreased [Not Recovered/Not Resolved]
  - Developmental delay [Unknown]
  - Hyperammonaemia [Unknown]
  - Drug dose omission [Unknown]
  - Amino acid level abnormal [Not Recovered/Not Resolved]
  - Cognitive disorder [Unknown]
